FAERS Safety Report 16683438 (Version 1)
Quarter: 2019Q3

REPORT INFORMATION
  Report Type: Spontaneous
  Country: US (occurrence: US)
  Receive Date: 20190807
  Receipt Date: 20190807
  Transmission Date: 20191007
  Serious: Yes (Other)
  Sender: FDA-Public Use
  Company Number: None

PATIENT
  Age: 21 Year
  Sex: Female
  Weight: 68.04 kg

DRUGS (1)
  1. NEXPLANON [Suspect]
     Active Substance: ETONOGESTREL
     Dates: start: 20170701, end: 20190807

REACTIONS (5)
  - Haemorrhage [None]
  - Pelvic pain [None]
  - Complication of device removal [None]
  - Procedural haemorrhage [None]
  - Contusion [None]

NARRATIVE: CASE EVENT DATE: 20190807
